FAERS Safety Report 21631599 (Version 1)
Quarter: 2022Q4

REPORT INFORMATION
  Report Type: Spontaneous
  Country: TR (occurrence: TR)
  Receive Date: 20221123
  Receipt Date: 20221123
  Transmission Date: 20230113
  Serious: Yes (Hospitalization, Other)
  Sender: FDA-Public Use
  Company Number: TR-ALKEM LABORATORIES LIMITED-TR-ALKEM-2022-13042

PATIENT
  Age: 3 Year
  Sex: Male

DRUGS (1)
  1. COLCHICINE [Suspect]
     Active Substance: COLCHICINE
     Indication: Product used for unknown indication
     Dosage: 0.2 MILLIGRAM/KILOGRAM, (INGESTED 5 PILLS TOGETHER)
     Route: 048

REACTIONS (11)
  - Disseminated intravascular coagulation [Recovering/Resolving]
  - Depressed level of consciousness [Recovering/Resolving]
  - Liver injury [Recovering/Resolving]
  - Neutropenia [Recovering/Resolving]
  - Rhabdomyolysis [Recovering/Resolving]
  - Toxicity to various agents [Recovering/Resolving]
  - Vomiting [Recovering/Resolving]
  - Hyponatraemia [Recovering/Resolving]
  - Hypokalaemia [Recovering/Resolving]
  - Hypocalcaemia [Recovering/Resolving]
  - Hypophosphataemia [Recovering/Resolving]
